FAERS Safety Report 11125074 (Version 1)
Quarter: 2015Q2

REPORT INFORMATION
  Report Type: Spontaneous
  Country: US (occurrence: US)
  Receive Date: 20150520
  Receipt Date: 20150520
  Transmission Date: 20150821
  Serious: No
  Sender: FDA-Public Use
  Company Number: US-FRI-1000076564

PATIENT
  Age: 61 Year
  Sex: Female

DRUGS (1)
  1. SAPHRIS [Suspect]
     Active Substance: ASENAPINE MALEATE
     Route: 048

REACTIONS (3)
  - Dyskinesia [Unknown]
  - Neuromyopathy [Unknown]
  - Wheezing [Unknown]
